FAERS Safety Report 23928650 (Version 1)
Quarter: 2024Q2

REPORT INFORMATION
  Report Type: Spontaneous
  Country: US (occurrence: US)
  Receive Date: 20240531
  Receipt Date: 20240531
  Transmission Date: 20240716
  Serious: Yes (Death, Life-Threatening, Hospitalization, Other)
  Sender: FDA-Public Use
  Company Number: US-MALLINCKRODT-MNK202403525

PATIENT
  Age: 69 Year
  Sex: Male

DRUGS (2)
  1. UVADEX [Suspect]
     Active Substance: METHOXSALEN
     Indication: Cutaneous T-cell lymphoma
     Dosage: UNKNOWN
     Route: 050
  2. BEXAROTENE [Concomitant]
     Active Substance: BEXAROTENE
     Dosage: UNKNOWN

REACTIONS (10)
  - Haemodynamic instability [Fatal]
  - Condition aggravated [Fatal]
  - Hypoxia [Unknown]
  - Respiratory distress [Unknown]
  - Septic shock [Unknown]
  - Renal impairment [Unknown]
  - Haemophagocytic lymphohistiocytosis [Unknown]
  - Systemic candida [Unknown]
  - Lung opacity [Unknown]
  - Herpes simplex [Unknown]
